FAERS Safety Report 4340752-2 (Version None)
Quarter: 2004Q2

REPORT INFORMATION
  Report Type: 
  Country: None (occurrence: None)
  Receive Date: 20040414
  Receipt Date: 20040329
  Transmission Date: 20050107
  Serious: Yes (Hospitalization, Disabling)
  Sender: FDA-Public Use
  Company Number: F01200400276

PATIENT
  Age: 78 Year
  Sex: Male

DRUGS (8)
  1. OXALIPLATIN [Suspect]
     Indication: BLADDER CANCER
     Dosage: INTRAVENOUS NOS
     Route: 042
     Dates: start: 20031224, end: 20031224
  2. (GEMCITABINE) - SOLUTION - 2185 MG [Suspect]
     Dosage: INTRAVENOUS NOS
     Route: 042
     Dates: start: 20031224, end: 20031224
  3. NORVASC [Concomitant]
  4. ENALAPRIL MALEATE [Concomitant]
  5. SUTRIL (TORASEMIDE) [Concomitant]
  6. NITODUR II (GLYCERYL TRINITRATE) [Concomitant]
  7. ZOFRAN [Concomitant]
  8. DEXAMETHASONE [Concomitant]

REACTIONS (10)
  - BRONCHIAL INFECTION [None]
  - BRONCHITIS [None]
  - HAEMATOCRIT DECREASED [None]
  - HAEMATURIA [None]
  - HAEMOGLOBIN DECREASED [None]
  - PLATELET COUNT DECREASED [None]
  - RED BLOOD CELL COUNT DECREASED [None]
  - STAPHYLOCOCCAL SEPSIS [None]
  - THROMBOSIS [None]
  - URINARY TRACT INFECTION [None]
